FAERS Safety Report 6065786-1 (Version None)
Quarter: 2009Q1

REPORT INFORMATION
  Report Type: 
  Country: None (occurrence: None)
  Receive Date: 20090205
  Receipt Date: 20090123
  Transmission Date: 20090719
  Serious: Yes (Hospitalization)
  Sender: FDA-Public Use
  Company Number: GB-RANBAXY-2009RR-21546

PATIENT
  Age: 58 Year
  Sex: Female

DRUGS (21)
  1. CLOMIPRAMINE HCL [Suspect]
     Dosage: 120 MG, QD
     Route: 048
     Dates: start: 19830101, end: 20071210
  2. CLOMIPRAMINE HCL [Suspect]
     Dosage: 200 MG, QD
     Route: 065
     Dates: end: 20080101
  3. CLOMIPRAMINE HCL [Suspect]
     Dosage: 25 MG, UNK
     Route: 065
  4. DEPAKOTE [Suspect]
     Dosage: 500 MG, BID
     Route: 048
  5. FLUOXETINE HCL [Suspect]
     Dosage: 20 MG, UNK
     Route: 065
     Dates: start: 20080120, end: 20080224
  6. FLUOXETINE HCL [Suspect]
     Dosage: 40 MG, UNK
     Route: 065
     Dates: start: 20080225
  7. FLUOXETINE HCL [Suspect]
     Dosage: 60 MG, UNK
     Route: 065
     Dates: start: 20071231, end: 20080119
  8. SEROQUEL [Suspect]
     Indication: ANXIETY
     Dosage: 250 MG, BID
     Route: 048
     Dates: start: 20080401
  9. SEROQUEL [Suspect]
     Indication: DEPRESSION
     Dosage: 300 MG, QD
     Route: 048
     Dates: start: 20080901
  10. SEROQUEL [Suspect]
     Dosage: 350 MG, QD
     Route: 048
     Dates: start: 20081031
  11. SEROQUEL [Suspect]
     Dosage: 400 MG, BID
     Route: 048
     Dates: end: 20081030
  12. SEROQUEL [Suspect]
     Dosage: 450 MG, QD
     Route: 048
  13. SEROQUEL [Suspect]
     Dosage: 500 MG, QD
     Route: 048
  14. SEROQUEL [Suspect]
     Dosage: 50 MG, UNK
     Route: 048
  15. SIMVASTATIN [Suspect]
     Dosage: 40 MG, UNK
     Route: 065
  16. ZOPICLONE [Suspect]
     Dosage: 10 MG, QD
     Route: 065
  17. PROCHLORPERAZINE [Concomitant]
     Dosage: 5 MG, TID
  18. PROCHLORPERAZINE [Concomitant]
     Dosage: 5 MG, BID
  19. RISPERIDONE [Concomitant]
  20. DIAZEPAM [Concomitant]
  21. HALOPERIDOL [Concomitant]

REACTIONS (12)
  - ANXIETY [None]
  - DEPRESSED MOOD [None]
  - DISTURBANCE IN SEXUAL AROUSAL [None]
  - EMOTIONAL DISTRESS [None]
  - EXTRASYSTOLES [None]
  - HEART RATE IRREGULAR [None]
  - NERVOUS SYSTEM DISORDER [None]
  - NIGHTMARE [None]
  - ORTHOSTATIC HYPOTENSION [None]
  - PALPITATIONS [None]
  - SOMNOLENCE [None]
  - SUICIDAL IDEATION [None]
